FAERS Safety Report 6989698 (Version 6)
Quarter: 2012Q4

REPORT INFORMATION
  Report Type: 
  Country: US (occurrence: US)
  Receive Date: 20090508
  Receipt Date: 20121022
  Transmission Date: 20130627
  Serious: Yes (Other)
  Sender: FDA-Public Use
  Company Number: US-PFIZER INC-2009155639

PATIENT
  Age: 9 Year
  Sex: Male
  Weight: 48 kg

DRUGS (11)
  1. GENOTROPIN [Suspect]
     Indication: BODY HEIGHT BELOW NORMAL
     Dosage: 2.2 mg, UNK
     Route: 058
     Dates: end: 200901
  2. GENOTROPIN [Suspect]
     Indication: HEAD CIRCUMFERENCE ABNORMAL
     Dosage: 1.4 mg, UNK
     Dates: start: 200901
  3. GENOTROPIN [Suspect]
     Dosage: 3 mg, 1x/day
  4. GENOTROPIN [Suspect]
     Dosage: UNK
  5. RISPERIDONE [Concomitant]
     Dosage: UNK
  6. TENEX [Concomitant]
     Dosage: UNK
  7. SERTRALINE [Concomitant]
     Dosage: 25 mg, 2x/day
     Route: 048
  8. TRAZODONE [Concomitant]
     Indication: SLEEP DISORDER
     Dosage: 50 mg, 1x/day
  9. FANAPT [Concomitant]
     Indication: ATTENTION DEFICIT/HYPERACTIVITY DISORDER
     Dosage: 8 mg, 2x/day
  10. METADATE CD [Concomitant]
     Indication: ATTENTION DEFICIT/HYPERACTIVITY DISORDER
     Dosage: 40 mg, 1x/day
  11. METADATE CD [Concomitant]
     Indication: AUTISM

REACTIONS (6)
  - Papilloedema [Recovered/Resolved]
  - Headache [Recovered/Resolved]
  - Visual impairment [Recovered/Resolved]
  - Eye pain [Unknown]
  - Product quality issue [Unknown]
  - Poor quality drug administered [Unknown]
